FAERS Safety Report 6011223-2 (Version None)
Quarter: 2008Q4

REPORT INFORMATION
  Report Type: 
  Country: None (occurrence: None)
  Receive Date: 20081218
  Receipt Date: 20081209
  Transmission Date: 20090506
  Serious: Yes (Disabling, Other)
  Sender: FDA-Public Use
  Company Number: US-MERCK-0707USA05060

PATIENT
  Age: 48 Year
  Sex: Female

DRUGS (4)
  1. FOSAMAX [Suspect]
     Indication: OSTEOPOROSIS
     Route: 048
     Dates: start: 20020211
  2. FOSAMAX [Suspect]
     Route: 048
     Dates: start: 20000515
  3. FOSAMAX [Suspect]
     Route: 048
     Dates: start: 20000515, end: 20050701
  4. ACTONEL [Concomitant]
     Route: 065
     Dates: start: 20020601, end: 20020901

REACTIONS (15)
  - ADVERSE DRUG REACTION [None]
  - ANXIETY [None]
  - ARTHRALGIA [None]
  - DEPRESSION [None]
  - FATIGUE [None]
  - GOITRE [None]
  - HAEMANGIOMA [None]
  - HYPERTHYROIDISM [None]
  - HYPOTHYROIDISM [None]
  - MYALGIA [None]
  - OSTEOMYELITIS [None]
  - PARAESTHESIA [None]
  - SEBORRHOEIC KERATOSIS [None]
  - TOOTH DISORDER [None]
  - URTICARIA [None]
